FAERS Safety Report 8278089 (Version 2)
Quarter: 2012Q4

REPORT INFORMATION
  Report Type: Report from Study
  Country: JP (occurrence: JP)
  Receive Date: 20111207
  Receipt Date: 20121010
  Transmission Date: 20130627
  Serious: Yes (Hospitalization)
  Sender: FDA-Public Use
  Company Number: JP-ROCHE-1013568

PATIENT
  Age: 53 Year
  Sex: Female

DRUGS (5)
  1. ETIZOLAM [Concomitant]
     Route: 065
     Dates: start: 2008
  2. PEGINTERFERON ALFA-2A [Suspect]
     Indication: HEPATITIS C
     Route: 065
     Dates: start: 20110610
  3. PEGINTERFERON ALFA-2A [Suspect]
     Route: 065
     Dates: start: 20110818
  4. UNSPECIFIED INGREDIENT [Suspect]
     Indication: HEPATITIS C
     Route: 065
     Dates: start: 20110610
  5. COPEGUS [Suspect]
     Indication: HEPATITIS C
     Route: 048
     Dates: start: 20110610, end: 20110824

REACTIONS (3)
  - Alanine aminotransferase increased [Recovered/Resolved]
  - Aspartate aminotransferase increased [Recovered/Resolved]
  - Blood bilirubin increased [Recovered/Resolved]
